FAERS Safety Report 7836352-X (Version None)
Quarter: 2011Q4

REPORT INFORMATION
  Report Type: 
  Country: None (occurrence: None)
  Receive Date: 20111024
  Receipt Date: 20110512
  Transmission Date: 20120403
  Serious: No
  Sender: FDA-Public Use
  Company Number: US-ABBOTT-11P-163-0726010-00

PATIENT
  Sex: Female
  Weight: 64.468 kg

DRUGS (4)
  1. TRAZODONE HYDROCHLORIDE [Concomitant]
     Indication: INSOMNIA
  2. LUPRON DEPOT [Suspect]
     Indication: ENDOMETRIOSIS
     Dates: start: 20110403
  3. PAXIL [Concomitant]
     Indication: ANXIETY
  4. LUPRON DEPOT [Suspect]
     Indication: OVARIAN CYST

REACTIONS (4)
  - LIGAMENT SPRAIN [None]
  - PAIN IN EXTREMITY [None]
  - FOOT FRACTURE [None]
  - ABNORMAL DREAMS [None]
